FAERS Safety Report 6335717-5 (Version None)
Quarter: 2009Q3

REPORT INFORMATION
  Report Type: 
  Country: None (occurrence: None)
  Receive Date: 20090831
  Receipt Date: 20090821
  Transmission Date: 20100115
  Serious: Yes (Hospitalization, Other)
  Sender: FDA-Public Use
  Company Number: US-ABBOTT-09P-163-0589594-00

PATIENT
  Sex: Male
  Weight: 107.6 kg

DRUGS (6)
  1. HUMIRA [Suspect]
     Indication: PSORIATIC ARTHROPATHY
     Dates: start: 20090722, end: 20090722
  2. HUMIRA [Suspect]
     Indication: PSORIASIS
     Dosage: ONCE
     Dates: start: 20090726, end: 20090726
  3. TOPROL-XL [Concomitant]
     Indication: HYPERTENSION
  4. LIPITOR [Concomitant]
     Indication: DRUG USE FOR UNKNOWN INDICATION
  5. ASPIRIN [Concomitant]
     Indication: DRUG USE FOR UNKNOWN INDICATION
  6. DIOVAN [Concomitant]
     Indication: DRUG USE FOR UNKNOWN INDICATION

REACTIONS (10)
  - ALANINE AMINOTRANSFERASE INCREASED [None]
  - ARTHRALGIA [None]
  - ASPARTATE AMINOTRANSFERASE INCREASED [None]
  - CEREBROVASCULAR ACCIDENT [None]
  - CHILLS [None]
  - EMBOLISM [None]
  - HYPERSENSITIVITY [None]
  - INJECTION SITE REACTION [None]
  - PYREXIA [None]
  - RASH [None]
